FAERS Safety Report 9596863 (Version 1)
Quarter: 2013Q4

REPORT INFORMATION
  Report Type: Report from Study
  Country: None (occurrence: US)
  Receive Date: 20131004
  Receipt Date: 20131004
  Transmission Date: 20140711
  Serious: Yes (Hospitalization)
  Sender: FDA-Public Use
  Company Number: US-ABBVIE-13P-163-1151814-00

PATIENT
  Age: 17 Year
  Sex: Female
  Weight: 51.2 kg

DRUGS (6)
  1. HUMIRA [Suspect]
     Indication: CROHN^S DISEASE
     Route: 058
     Dates: start: 2012
  2. IRON [Concomitant]
     Indication: MINERAL SUPPLEMENTATION
     Route: 048
  3. OMEPRAZOLE [Concomitant]
     Indication: GASTRITIS
  4. 6-MP [Concomitant]
     Indication: CROHN^S DISEASE
  5. ALBUTEROL [Concomitant]
     Indication: PRODUCT USED FOR UNKNOWN INDICATION
  6. ONDANSETRON [Concomitant]
     Indication: NAUSEA

REACTIONS (4)
  - Diarrhoea haemorrhagic [Recovered/Resolved]
  - Gastroenteritis salmonella [Recovered/Resolved]
  - Dehydration [Recovered/Resolved]
  - Crohn^s disease [Unknown]
